FAERS Safety Report 12410962 (Version 1)
Quarter: 2016Q2

REPORT INFORMATION
  Report Type: Spontaneous
  Country: US (occurrence: None)
  Receive Date: 20160526
  Receipt Date: 20160526
  Transmission Date: 20160815
  Serious: No
  Sender: FDA-Public Use
  Company Number: None

PATIENT
  Age: 80 Year
  Sex: Female
  Weight: 59.42 kg

DRUGS (10)
  1. FISH OIL [Concomitant]
     Active Substance: FISH OIL
  2. MYRBETRIQ [Suspect]
     Active Substance: MIRABEGRON
     Indication: HYPERTONIC BLADDER
     Dosage: 1 PILL
     Route: 048
     Dates: end: 20160319
  3. SIVASTATIN RATIOPHARM 80 MG [Concomitant]
     Active Substance: SIMVASTATIN
  4. MYRBETRIQ [Suspect]
     Active Substance: MIRABEGRON
     Indication: MULTIPLE SCLEROSIS
     Dosage: 1 PILL
     Route: 048
     Dates: end: 20160319
  5. VITAMIN D [Concomitant]
     Active Substance: CHOLECALCIFEROL
  6. TRAZODONE [Concomitant]
     Active Substance: TRAZODONE HYDROCHLORIDE
  7. GABAPENTIN. [Concomitant]
     Active Substance: GABAPENTIN
  8. MULTVITAMIN [Concomitant]
  9. COPAXONE [Concomitant]
     Active Substance: GLATIRAMER ACETATE
  10. CALCIUM [Concomitant]
     Active Substance: CALCIUM

REACTIONS (1)
  - Palpitations [None]

NARRATIVE: CASE EVENT DATE: 201603
